FAERS Safety Report 5161544-0 (Version None)
Quarter: 2006Q4

REPORT INFORMATION
  Report Type: 
  Country: None (occurrence: None)
  Receive Date: 20061130
  Receipt Date: 20060907
  Transmission Date: 20070319
  Serious: No
  Sender: FDA-Public Use
  Company Number: US-GLAXOSMITHKLINE-A0619392A

PATIENT
  Age: 17 Year
  Sex: Male

DRUGS (3)
  1. WELLBUTRIN XL [Suspect]
     Dosage: 150MCG PER DAY
     Route: 048
     Dates: start: 19950101, end: 20060716
  2. ZYRTEC [Concomitant]
  3. FLONASE [Concomitant]

REACTIONS (1)
  - HEADACHE [None]
